FAERS Safety Report 3389745 (Version 4)
Quarter: 2014Q2

REPORT INFORMATION
  Report Type: Spontaneous
  Country: FR (occurrence: FR)
  Receive Date: 19991119
  Receipt Date: 20140619
  Transmission Date: 20141212
  Serious: Yes (Hospitalization, Other)
  Sender: FDA-Public Use
  Company Number: 10175933

PATIENT
  Age: 1 Day
  Sex: Male
  Weight: 3.61 kg

DRUGS (11)
  1. ZERIT CAPS [Suspect]
     Dosage: DURING THE WHOLE PREGNANCY
     Route: 064
     Dates: end: 19980619
  2. EPIVIR [Suspect]
     Dosage: TRANSPLACENTALLY DURING THE WHOLE PREGNANCY, THEN FOR 6 WEEKS AFTER BIRTH
     Route: 064
     Dates: end: 19980619
  3. RETROVIR [Suspect]
     Route: 064
  4. PRIMPERAN [Concomitant]
     Route: 064
  5. SMECTA [Concomitant]
     Route: 064
  6. GAVISCON [Concomitant]
     Route: 064
  7. VITAMIN B + MAGNESIUM [Concomitant]
     Route: 064
  8. ERGOCALCIFEROL [Concomitant]
     Route: 064
  9. FERROSTRANE [Concomitant]
  10. POLYSILANE JOULLIE [Concomitant]
  11. VACCINE [Concomitant]

REACTIONS (8)
  - Hypospadias [Recovered/Resolved with Sequelae]
  - Anaemia [Recovered/Resolved with Sequelae]
  - Blood lactic acid increased [Recovered/Resolved with Sequelae]
  - Hyperkalaemia [Recovered/Resolved with Sequelae]
  - Hypotonia [Recovered/Resolved]
  - Gastrooesophageal reflux disease [Recovered/Resolved]
  - Aspartate aminotransferase increased [Recovered/Resolved]
  - Congenital genital malformation [Unknown]
